FAERS Safety Report 12556752 (Version 1)
Quarter: 2016Q3

REPORT INFORMATION
  Report Type: Spontaneous
  Country: JP (occurrence: JP)
  Receive Date: 20160714
  Receipt Date: 20160714
  Transmission Date: 20161109
  Serious: Yes (Other)
  Sender: FDA-Public Use
  Company Number: JP-PFIZER INC-2016339136

PATIENT

DRUGS (2)
  1. SELARA 25MG [Suspect]
     Active Substance: EPLERENONE
     Indication: HYPERTENSION
     Route: 048
  2. ASPARA K [Suspect]
     Active Substance: POTASSIUM ASPARTATE

REACTIONS (4)
  - Blood potassium decreased [Recovering/Resolving]
  - Contraindicated product administered [Unknown]
  - Clostridium difficile colitis [Unknown]
  - Pneumonia [Unknown]
